FAERS Safety Report 7277892-4 (Version None)
Quarter: 2011Q1

REPORT INFORMATION
  Report Type: 
  Country: None (occurrence: None)
  Receive Date: 20110207
  Receipt Date: 20110129
  Transmission Date: 20110831
  Serious: Yes (Hospitalization)
  Sender: FDA-Public Use
  Company Number: US-ROCHE-752158

PATIENT
  Sex: Female
  Weight: 70.2 kg

DRUGS (8)
  1. PACLITAXEL [Suspect]
     Indication: ANGIOSARCOMA
     Dosage: 378 MG
     Route: 042
     Dates: start: 20100708, end: 20101020
  2. BEVACIZUMAB [Suspect]
     Indication: ANGIOSARCOMA
     Dosage: 1135 MG
     Route: 042
     Dates: start: 20100708, end: 20101222
  3. BENAZEPRIL HYDROCHLORIDE [Concomitant]
     Dates: start: 20100201
  4. CRESTOR [Concomitant]
     Dates: start: 20080101
  5. ACETYLSALICYLIC ACID [Concomitant]
     Dates: start: 20080101
  6. VICODIN [Concomitant]
     Dosage: 3- 500 MG AS NEEDED.
     Dates: start: 19890101
  7. METFORMIN [Concomitant]
     Dates: start: 20000101
  8. NORVASC [Concomitant]
     Dates: start: 20100818

REACTIONS (3)
  - RESPIRATORY FAILURE [None]
  - PNEUMONIA [None]
  - CARDIAC FAILURE CONGESTIVE [None]
